FAERS Safety Report 8501071-3 (Version None)
Quarter: 2012Q3

REPORT INFORMATION
  Report Type: 
  Country: None (occurrence: None)
  Receive Date: 20120710
  Receipt Date: 20120705
  Transmission Date: 20120928
  Serious: Yes (Other)
  Sender: FDA-Public Use
  Company Number: US-B.I. PHARMACEUTICALS,INC./RIDGEFIELD-2012-BP-15096BP

PATIENT
  Sex: Female

DRUGS (5)
  1. AGGRENOX [Suspect]
     Indication: ANTICOAGULANT THERAPY
     Route: 048
     Dates: start: 20000101
  2. ZOCOR [Concomitant]
     Indication: LOW DENSITY LIPOPROTEIN INCREASED
     Dosage: 20 MG
  3. FISH OIL [Concomitant]
     Indication: ANTICOAGULANT THERAPY
  4. STOOL SOFTENER [Concomitant]
     Indication: FAECES HARD
  5. CENTRUM [Concomitant]
     Indication: SUPPLEMENTATION THERAPY

REACTIONS (5)
  - TRANSIENT ISCHAEMIC ATTACK [None]
  - ENDOMETRIAL HYPERTROPHY [None]
  - LOSS OF CONSCIOUSNESS [None]
  - DIZZINESS [None]
  - CARDIAC DISORDER [None]
